FAERS Safety Report 24379452 (Version 4)
Quarter: 2024Q4

REPORT INFORMATION
  Report Type: Spontaneous
  Country: ES (occurrence: ES)
  Receive Date: 20240930
  Receipt Date: 20241227
  Transmission Date: 20250114
  Serious: Yes (Hospitalization, Other)
  Sender: OTSUKA
  Company Number: ES-AMAROX PHARMA-AMR2024ES02894

PATIENT
  Age: 53 Year
  Sex: Male

DRUGS (16)
  1. ARIPIPRAZOLE [Suspect]
     Active Substance: ARIPIPRAZOLE
     Indication: Antidepressant therapy
     Dosage: UNK
     Route: 065
  2. ARIPIPRAZOLE [Suspect]
     Active Substance: ARIPIPRAZOLE
     Indication: Bipolar disorder
  3. OLANZAPINE [Suspect]
     Active Substance: OLANZAPINE
     Indication: Antipsychotic therapy
     Dosage: UNK
     Route: 065
  4. OLANZAPINE [Suspect]
     Active Substance: OLANZAPINE
     Indication: Bipolar disorder
  5. DESVENLAFAXINE [Suspect]
     Active Substance: DESVENLAFAXINE
     Indication: Depression
     Dosage: UNK
     Route: 065
  6. DESVENLAFAXINE [Suspect]
     Active Substance: DESVENLAFAXINE
     Indication: Bipolar disorder
  7. VALPROIC ACID [Suspect]
     Active Substance: VALPROIC ACID
     Indication: Epilepsy
     Dosage: 15 MG/KG, QD
     Route: 065
  8. VALPROIC ACID [Suspect]
     Active Substance: VALPROIC ACID
     Indication: Bipolar disorder
     Dosage: 500 MG, BID (EVERY 12 HOUR)
     Route: 065
     Dates: start: 201907
  9. LORMETAZEPAM [Suspect]
     Active Substance: LORMETAZEPAM
     Indication: Bipolar disorder
     Dosage: UNK
     Route: 065
  10. LITHIUM [Suspect]
     Active Substance: LITHIUM
     Indication: Psychotic disorder
     Dosage: UNK
     Route: 065
  11. LITHIUM [Suspect]
     Active Substance: LITHIUM
     Indication: Bipolar disorder
  12. DISULFIRAM [Interacting]
     Active Substance: DISULFIRAM
     Indication: Alcoholism
     Dosage: UNK
     Route: 065
  13. METRONIDAZOLE [Interacting]
     Active Substance: METRONIDAZOLE
     Indication: Diverticulitis
     Dosage: 250 MILLIGRAM, BID (EVERY 12 HOURS)
     Route: 065
  14. CIPROFLOXACIN [Suspect]
     Active Substance: CIPROFLOXACIN
     Indication: Diverticulitis
     Dosage: 500 MILLIGRAM, BID (Q12H)
     Route: 065
  15. BUPROPION [Concomitant]
     Active Substance: BUPROPION
     Indication: Depression
     Dosage: UNK
     Route: 065
  16. TRAZODONE [Concomitant]
     Active Substance: TRAZODONE HYDROCHLORIDE
     Indication: Depression
     Dosage: UNK
     Route: 065

REACTIONS (7)
  - Toxic encephalopathy [Recovered/Resolved]
  - Neurotoxicity [Recovered/Resolved]
  - Confusional state [Recovered/Resolved]
  - Generalised tonic-clonic seizure [Recovered/Resolved]
  - Psychomotor skills impaired [Unknown]
  - Sedation [Unknown]
  - Product use in unapproved indication [Unknown]
